FAERS Safety Report 8444742-X (Version None)
Quarter: 2012Q2

REPORT INFORMATION
  Report Type: 
  Country: None (occurrence: None)
  Receive Date: 20120618
  Receipt Date: 20120604
  Transmission Date: 20120825
  Serious: Yes (Death)
  Sender: FDA-Public Use
  Company Number: JP-ROCHE-1001528

PATIENT
  Sex: Male
  Weight: 51 kg

DRUGS (6)
  1. FLUOROURACIL [Concomitant]
     Route: 041
     Dates: start: 20110728, end: 20110901
  2. AVASTIN [Suspect]
     Indication: COLON CANCER METASTATIC
     Route: 041
     Dates: start: 20110728, end: 20110907
  3. LEVOLEUCOVORIN CALCIUM [Concomitant]
     Indication: COLON CANCER METASTATIC
     Dosage: MFOLFOX6 CHEMOTHERAPY
     Route: 041
     Dates: start: 20110728, end: 20110907
  4. OXALIPLATIN [Suspect]
     Indication: COLON CANCER METASTATIC
     Dosage: MFOLFOX6 CHEMOTHERAPY
     Route: 041
     Dates: start: 20110728, end: 20110907
  5. ALOXI [Concomitant]
     Indication: PROPHYLAXIS OF NAUSEA AND VOMITING
     Route: 042
     Dates: start: 20110728, end: 20110907
  6. FLUOROURACIL [Concomitant]
     Indication: COLON CANCER METASTATIC
     Dosage: MFOLFOX6 CHEMOTHERAPY
     Route: 040
     Dates: start: 20110728, end: 20110907

REACTIONS (5)
  - SEPSIS [None]
  - NEUROPATHY PERIPHERAL [None]
  - LARGE INTESTINE PERFORATION [None]
  - PERITONITIS [None]
  - COLON CANCER METASTATIC [None]
